FAERS Safety Report 21048962 (Version 1)
Quarter: 2022Q3

REPORT INFORMATION
  Report Type: Spontaneous
  Country: US (occurrence: None)
  Receive Date: 20220706
  Receipt Date: 20220706
  Transmission Date: 20221026
  Serious: No
  Sender: FDA-Public Use
  Company Number: None

PATIENT
  Age: 52 Year
  Sex: Female
  Weight: 86.82 kg

DRUGS (5)
  1. BRAFTOVI [Suspect]
     Active Substance: ENCORAFENIB
     Indication: Colon cancer
     Dosage: FREQUENCY : DAILY;?
     Route: 048
     Dates: start: 202107
  2. FUROSEMIDE [Concomitant]
     Active Substance: FUROSEMIDE
  3. IRON [Concomitant]
     Active Substance: IRON
  4. LOVENOX [Concomitant]
     Active Substance: ENOXAPARIN SODIUM
  5. VITAMINS [Concomitant]
     Active Substance: VITAMINS

REACTIONS (1)
  - Disease progression [None]
